FAERS Safety Report 18222353 (Version 11)
Quarter: 2022Q3

REPORT INFORMATION
  Report Type: Report from Study
  Country: JP (occurrence: JP)
  Receive Date: 20200902
  Receipt Date: 20220801
  Transmission Date: 20221026
  Serious: Yes (Hospitalization, Other)
  Sender: FDA-Public Use
  Company Number: JP-ASTELLAS-2020JP001051

PATIENT
  Age: 78 Year
  Sex: Female
  Weight: 47 kg

DRUGS (24)
  1. GILTERITINIB [Suspect]
     Active Substance: GILTERITINIB
     Indication: Acute myeloid leukaemia
     Route: 048
     Dates: start: 20191111, end: 20191114
  2. GILTERITINIB [Suspect]
     Active Substance: GILTERITINIB
     Route: 048
     Dates: start: 20191129, end: 20200828
  3. GILTERITINIB [Suspect]
     Active Substance: GILTERITINIB
     Route: 048
     Dates: start: 20200910, end: 20210611
  4. GILTERITINIB [Suspect]
     Active Substance: GILTERITINIB
     Route: 048
     Dates: start: 20210618
  5. AZACITIDINE [Suspect]
     Active Substance: AZACITIDINE
     Indication: Acute myeloid leukaemia
     Route: 042
     Dates: start: 20191111, end: 20191114
  6. AZACITIDINE [Suspect]
     Active Substance: AZACITIDINE
     Route: 042
     Dates: start: 20200117, end: 20200803
  7. AZACITIDINE [Suspect]
     Active Substance: AZACITIDINE
     Route: 042
     Dates: start: 20200918
  8. ZOLPIDEM TARTRATE [Concomitant]
     Active Substance: ZOLPIDEM TARTRATE
     Indication: Insomnia
     Route: 048
     Dates: start: 2014
  9. NEXIUM [Concomitant]
     Active Substance: ESOMEPRAZOLE MAGNESIUM
     Indication: Prophylaxis
     Route: 048
     Dates: start: 2015
  10. LINAGLIPTIN [Concomitant]
     Active Substance: LINAGLIPTIN
     Indication: Diabetes mellitus
     Route: 048
     Dates: start: 2016
  11. LOXOPROFEN SODIUM DIHYDRATE [Concomitant]
     Active Substance: LOXOPROFEN SODIUM DIHYDRATE
     Indication: Pain
     Dosage: 60 MG,AS NEEDED
     Route: 048
     Dates: start: 201910
  12. BROMFENAC SODIUM HYDRATE [Concomitant]
     Indication: Cataract
     Dosage: ADEQUATE DOSE, AS NEEDED
     Route: 047
     Dates: start: 201909
  13. GATIFLOXACIN [Concomitant]
     Active Substance: GATIFLOXACIN
     Indication: Cataract
     Dosage: ADEQUATE DOSE, AS NEEDED
     Route: 047
     Dates: start: 201909
  14. REBAMIPIDE [Concomitant]
     Active Substance: REBAMIPIDE
     Indication: Prophylaxis
     Route: 048
     Dates: start: 201910
  15. LOXOPROFEN SODIUM [Concomitant]
     Active Substance: LOXOPROFEN SODIUM
     Indication: Pain
     Dosage: ADEQUATE DOSE, AS NEEDED
     Route: 050
     Dates: start: 201910
  16. FML [Concomitant]
     Active Substance: FLUOROMETHOLONE
     Indication: Cataract
     Dosage: ADEQUATE DOSE, AS NEEDED
     Route: 047
     Dates: start: 20191030
  17. CALONAL [Concomitant]
     Active Substance: ACETAMINOPHEN
     Indication: Pain
     Route: 048
     Dates: start: 20191030
  18. HEPARINOID [Concomitant]
     Indication: Prophylaxis
     Dosage: ADEQUATE DOSE, AS NEEDED
     Route: 050
     Dates: start: 20191108
  19. SODIUM GUALENATE MONOHYDRATE [Concomitant]
     Active Substance: SODIUM GUALENATE MONOHYDRATE
     Indication: Prophylaxis
     Dosage: ADEQUATE DOSE, AS NEEDED
     Route: 050
     Dates: start: 20191118
  20. WHITE PETROLATUM [Concomitant]
     Active Substance: PETROLATUM
     Indication: Prophylaxis
     Dosage: ADEQUATE DOSE, AS NEEDED
     Route: 050
     Dates: start: 20191124
  21. FLUCONAZOLE [Concomitant]
     Active Substance: FLUCONAZOLE
     Indication: Prophylaxis
     Route: 048
     Dates: start: 20191126
  22. FLUCONAZOLE [Concomitant]
     Active Substance: FLUCONAZOLE
     Route: 048
     Dates: start: 20210611
  23. MIYA-BM [Concomitant]
     Active Substance: CLOSTRIDIUM BUTYRICUM SPORES STRAIN M-55
     Indication: Faeces soft
     Route: 048
     Dates: start: 20200119
  24. AMLODIPINE [Concomitant]
     Active Substance: AMLODIPINE BESYLATE
     Indication: Product used for unknown indication
     Route: 048
     Dates: start: 20200904

REACTIONS (4)
  - Febrile neutropenia [Recovered/Resolved]
  - Septic embolus [Recovered/Resolved]
  - Cellulitis [Recovered/Resolved]
  - Klebsiella bacteraemia [Recovered/Resolved]

NARRATIVE: CASE EVENT DATE: 20200218
